FAERS Safety Report 6831665-2 (Version None)
Quarter: 2010Q3

REPORT INFORMATION
  Report Type: 
  Country: None (occurrence: None)
  Receive Date: 20100712
  Receipt Date: 20100702
  Transmission Date: 20110219
  Serious: Yes (Other)
  Sender: FDA-Public Use
  Company Number: FR-TEVA-236412ISR

PATIENT
  Age: 49 Year
  Sex: Male

DRUGS (1)
  1. AZILECT [Suspect]
     Indication: PARKINSON'S DISEASE
     Route: 048
     Dates: start: 20100201, end: 20100407

REACTIONS (4)
  - DECREASED APPETITE [None]
  - MAJOR DEPRESSION [None]
  - SUICIDAL IDEATION [None]
  - WEIGHT DECREASED [None]
